FAERS Safety Report 25728535 (Version 2)
Quarter: 2025Q3

REPORT INFORMATION
  Report Type: Other
  Country: US (occurrence: US)
  Receive Date: 20250826
  Receipt Date: 20250917
  Transmission Date: 20251020
  Serious: Yes (Other)
  Sender: MADRIGAL PHARMACEUTICALS
  Company Number: US-MADRIGAL PHARMACEUTICALS, INC-2025REZ9007

PATIENT

DRUGS (20)
  1. REZDIFFRA [Suspect]
     Active Substance: RESMETIROM
     Indication: Hepatic fibrosis
     Dosage: 100 MILLIGRAM, QD
     Route: 048
     Dates: start: 20250527, end: 20250811
  2. REZDIFFRA [Suspect]
     Active Substance: RESMETIROM
     Indication: Hepatic cirrhosis
     Route: 048
     Dates: start: 2025
  3. REZDIFFRA [Suspect]
     Active Substance: RESMETIROM
     Route: 048
  4. GLIMEPIRIDE [Concomitant]
     Active Substance: GLIMEPIRIDE
  5. LINZESS [Concomitant]
     Active Substance: LINACLOTIDE
  6. METFORMIN [Concomitant]
     Active Substance: METFORMIN HYDROCHLORIDE
  7. OZEMPIC [Concomitant]
     Active Substance: SEMAGLUTIDE
     Dosage: 1 MILLIGRAM, QW
  8. SPIRIVA [Concomitant]
     Active Substance: TIOTROPIUM BROMIDE MONOHYDRATE
  9. ZALEPLON [Concomitant]
     Active Substance: ZALEPLON
  10. OXYBUTYNIN CHLORIDE [Concomitant]
     Active Substance: OXYBUTYNIN CHLORIDE
  11. OMEPRAZOLE [Concomitant]
     Active Substance: OMEPRAZOLE
  12. METHOCARBAMOL [Concomitant]
     Active Substance: METHOCARBAMOL
  13. LISINOPRIL [Concomitant]
     Active Substance: LISINOPRIL
  14. LEVOTHYROXINE [Concomitant]
     Active Substance: LEVOTHYROXINE
  15. LANTUS [Concomitant]
     Active Substance: INSULIN GLARGINE
     Dosage: 35 INTERNATIONAL UNIT, BID
  16. ESTRADIOL [Concomitant]
     Active Substance: ESTRADIOL
     Route: 067
  17. CYCLOBENZAPRINE [Concomitant]
     Active Substance: CYCLOBENZAPRINE
  18. ATORVASTATIN [Concomitant]
     Active Substance: ATORVASTATIN
  19. AMLODIPINE [Concomitant]
     Active Substance: AMLODIPINE BESYLATE
  20. ALBUTEROL [Concomitant]
     Active Substance: ALBUTEROL
     Indication: Wheezing
     Dosage: NEB, QID, PRN

REACTIONS (9)
  - Hepatic cirrhosis [Not Recovered/Not Resolved]
  - Feeling hot [Recovered/Resolved]
  - Tremor [Not Recovered/Not Resolved]
  - Varices oesophageal [Unknown]
  - Splenomegaly [Unknown]
  - Dizziness [Not Recovered/Not Resolved]
  - Blood glucose decreased [Not Recovered/Not Resolved]
  - Product use in unapproved indication [Unknown]
  - Intentional product misuse [Unknown]

NARRATIVE: CASE EVENT DATE: 20250101
